FAERS Safety Report 14016259 (Version 4)
Quarter: 2019Q2

REPORT INFORMATION
  Report Type: Spontaneous
  Country: US (occurrence: US)
  Receive Date: 20170927
  Receipt Date: 20190611
  Transmission Date: 20190711
  Serious: Yes (Hospitalization, Other)
  Sender: FDA-Public Use
  Company Number: US-SA-2016SA214973

PATIENT
  Age: 30 Year
  Sex: Female
  Weight: 57.3 kg

DRUGS (5)
  1. OXYCODONE [Suspect]
     Active Substance: OXYCODONE
     Route: 065
  2. ACETAMINOPHEN. [Concomitant]
     Active Substance: ACETAMINOPHEN
     Indication: PREMEDICATION
     Dosage: 1000 MG
     Route: 048
  3. METHYLPREDNISOLONE. [Concomitant]
     Active Substance: METHYLPREDNISOLONE
     Indication: PREMEDICATION
     Dosage: 1000 MG
     Route: 042
  4. DIPHENHYDRAMINE. [Concomitant]
     Active Substance: DIPHENHYDRAMINE
     Indication: PREMEDICATION
     Dosage: 50 MG
     Route: 042
  5. LEMTRADA [Suspect]
     Active Substance: ALEMTUZUMAB
     Indication: RELAPSING-REMITTING MULTIPLE SCLEROSIS
     Dosage: UNK UNK,UNK
     Route: 041
     Dates: start: 201611, end: 20161111

REACTIONS (22)
  - Ascites [Unknown]
  - Bradycardia [Recovering/Resolving]
  - Abdominal pain upper [Not Recovered/Not Resolved]
  - Myocardial infarction [Unknown]
  - Gastrointestinal oedema [Unknown]
  - Thrombocytopenia [Unknown]
  - Computerised tomogram abnormal [Unknown]
  - Leukocytosis [Unknown]
  - Dyspnoea [Unknown]
  - Neutrophil count increased [Unknown]
  - Pain [Recovered/Resolved]
  - Troponin increased [Recovered/Resolved]
  - Chest pain [Recovered/Resolved]
  - Fluid overload [Unknown]
  - Pleural thickening [Unknown]
  - Sinus bradycardia [Unknown]
  - Back pain [Recovering/Resolving]
  - Autonomic dysreflexia [Unknown]
  - Cardiac failure congestive [Unknown]
  - Rash erythematous [Recovering/Resolving]
  - Hypertension [Recovering/Resolving]
  - Alanine aminotransferase increased [Unknown]

NARRATIVE: CASE EVENT DATE: 201611
